FAERS Safety Report 10373803 (Version 1)
Quarter: 2014Q1

REPORT INFORMATION
  Report Type: Spontaneous
  Country: US (occurrence: None)
  Receive Date: 20140306
  Receipt Date: 20140306
  Transmission Date: 20141002
  Serious: Yes (Hospitalization)
  Sender: FDA-Public Use
  Company Number: 163-21880-13084260

PATIENT
  Age: 56 Year
  Sex: Female
  Weight: 81.6 kg

DRUGS (7)
  1. REVLIMID (LENALIDOMIDE) (5 MILLIGRAM, CAPSULES) [Suspect]
     Indication: PLASMA CELL MYELOMA
     Route: 048
     Dates: start: 201109
  2. AMBIEN (ZOLPIDEM TARTRATE) [Concomitant]
  3. RAMIPRIL [Concomitant]
  4. TOPROL XL (RAMIPRIL) [Concomitant]
  5. DEXAMETHASONE [Concomitant]
  6. ALTACE (RAMIPRIL) [Concomitant]
  7. ASPIRIN (ACETYLSALICYLIC ACID) [Concomitant]

REACTIONS (1)
  - Infection [None]
